FAERS Safety Report 7345243-2 (Version None)
Quarter: 2011Q1

REPORT INFORMATION
  Report Type: 
  Country: None (occurrence: None)
  Receive Date: 20110310
  Receipt Date: 20110228
  Transmission Date: 20110831
  Serious: Yes (Hospitalization)
  Sender: FDA-Public Use
  Company Number: US-ELI_LILLY_AND_COMPANY-US201103000246

PATIENT
  Age: 26 Year
  Sex: Male

DRUGS (4)
  1. PROZAC [Suspect]
     Indication: DEPRESSION
     Dates: end: 20110101
  2. CLONAZEPAM [Concomitant]
     Indication: DEPRESSION
     Dates: end: 20110101
  3. ABILIFY [Concomitant]
     Indication: DEPRESSION
     Dates: end: 20110101
  4. WELLBUTRIN [Concomitant]
     Indication: DEPRESSION
     Dates: end: 20110101

REACTIONS (1)
  - DEPRESSION [None]
